FAERS Safety Report 11336014 (Version 4)
Quarter: 2015Q3

REPORT INFORMATION
  Report Type: Spontaneous
  Country: JP (occurrence: JP)
  Receive Date: 20150804
  Receipt Date: 20150811
  Transmission Date: 20151125
  Serious: Yes (Other)
  Sender: FDA-Public Use
  Company Number: PHJP2015JP012795

PATIENT
  Sex: Female

DRUGS (5)
  1. DICLOFENAC [Suspect]
     Active Substance: DICLOFENAC
     Indication: PAIN
     Dosage: UNK
     Route: 048
  2. YOKUKANSAN [Suspect]
     Active Substance: HERBALS
     Indication: FIBROMYALGIA
     Route: 065
  3. YOKUKANSAN [Suspect]
     Active Substance: HERBALS
     Indication: PAIN
  4. NEUROTROPIN [Suspect]
     Active Substance: NEUROTROPIN
     Indication: PAIN
  5. NEUROTROPIN [Suspect]
     Active Substance: NEUROTROPIN
     Indication: FIBROMYALGIA
     Route: 065

REACTIONS (4)
  - Mastitis [Recovered/Resolved]
  - Symphysiolysis [Recovered/Resolved]
  - Fibromyalgia [Recovered/Resolved]
  - Postpartum uterine subinvolution [Recovered/Resolved]
